FAERS Safety Report 21666080 (Version 4)
Quarter: 2023Q2

REPORT INFORMATION
  Report Type: Report from Study
  Country: US (occurrence: US)
  Receive Date: 20221201
  Receipt Date: 20230611
  Transmission Date: 20230721
  Serious: Yes (Other)
  Sender: FDA-Public Use
  Company Number: US-ABBVIE-4218654

PATIENT
  Sex: Female

DRUGS (1)
  1. HUMIRA [Suspect]
     Active Substance: ADALIMUMAB
     Indication: Hidradenitis
     Dosage: FORM STRENGTH: 40 MG
     Route: 058
     Dates: start: 2019

REACTIONS (11)
  - Haemangiopericytoma [Unknown]
  - Fall [Unknown]
  - Bipolar disorder [Unknown]
  - Overweight [Unknown]
  - Post procedural complication [Unknown]
  - Post-traumatic stress disorder [Unknown]
  - Depression [Unknown]
  - Anxiety [Unknown]
  - Alopecia [Unknown]
  - Cyst [Unknown]
  - Mania [Unknown]

NARRATIVE: CASE EVENT DATE: 20190101
